FAERS Safety Report 21154735 (Version 1)
Quarter: 2022Q3

REPORT INFORMATION
  Report Type: Spontaneous
  Country: US (occurrence: None)
  Receive Date: 20220729
  Receipt Date: 20220729
  Transmission Date: 20221027
  Serious: No
  Sender: FDA-Public Use
  Company Number: None

PATIENT
  Age: 55 Year
  Sex: Male
  Weight: 76.05 kg

DRUGS (1)
  1. PAXLOVID [Suspect]
     Active Substance: NIRMATRELVIR\RITONAVIR
     Indication: COVID-19
     Dosage: FREQUENCY : TWICE A DAY;?
     Route: 048
     Dates: start: 20220727, end: 20220728

REACTIONS (7)
  - Abdominal pain upper [None]
  - Decreased appetite [None]
  - Diarrhoea [None]
  - Pain [None]
  - Blood pressure increased [None]
  - Weight decreased [None]
  - Flank pain [None]

NARRATIVE: CASE EVENT DATE: 20220728
